FAERS Safety Report 8287668-7 (Version None)
Quarter: 2012Q2

REPORT INFORMATION
  Report Type: 
  Country: None (occurrence: None)
  Receive Date: 20120416
  Receipt Date: 20120413
  Transmission Date: 20120825
  Serious: Yes (Death)
  Sender: FDA-Public Use
  Company Number: PHHY2011AU58287

PATIENT
  Sex: Female

DRUGS (2)
  1. ZOLEDRONOC ACID [Suspect]
     Dosage: 5 MG, UNK
     Route: 042
     Dates: start: 20100127
  2. ZOLEDRONOC ACID [Suspect]
     Dosage: UNK UKN, UNK
     Route: 042

REACTIONS (1)
  - CERVIX CARCINOMA [None]
